FAERS Safety Report 6155852-4 (Version None)
Quarter: 2009Q2

REPORT INFORMATION
  Report Type: 
  Country: None (occurrence: None)
  Receive Date: 20090415
  Receipt Date: 20090410
  Transmission Date: 20091009
  Serious: Yes (Other)
  Sender: FDA-Public Use
  Company Number: US-MERCK-0904USA01531

PATIENT
  Age: 40 Year
  Sex: Female

DRUGS (2)
  1. SINGULAIR [Suspect]
     Indication: ASTHMA
     Route: 048
     Dates: start: 20090101
  2. SINGULAIR [Suspect]
     Indication: HYPERSENSITIVITY
     Route: 048
     Dates: start: 20090101

REACTIONS (5)
  - ANXIETY [None]
  - CHEST PAIN [None]
  - DEPRESSION [None]
  - PALPITATIONS [None]
  - SUICIDAL IDEATION [None]
